FAERS Safety Report 15792965 (Version 5)
Quarter: 2019Q2

REPORT INFORMATION
  Report Type: Report from Study
  Country: IE (occurrence: IE)
  Receive Date: 20190107
  Receipt Date: 20190415
  Transmission Date: 20190711
  Serious: Yes (Hospitalization, Other)
  Sender: FDA-Public Use
  Company Number: IE-BRISTOL-MYERS SQUIBB COMPANY-BMS-2019-000466

PATIENT
  Age: 51 Year
  Sex: Male

DRUGS (1)
  1. NIVOLUMAB [Suspect]
     Active Substance: NIVOLUMAB
     Indication: HEAD AND NECK CANCER
     Dosage: UNK
     Route: 065
     Dates: start: 20181219

REACTIONS (3)
  - Eye infection [Recovering/Resolving]
  - Malignant neoplasm progression [Recovering/Resolving]
  - Oral mucosal blistering [Recovering/Resolving]

NARRATIVE: CASE EVENT DATE: 20181227
